FAERS Safety Report 20922445 (Version 1)
Quarter: 2022Q2

REPORT INFORMATION
  Report Type: Spontaneous
  Country: US (occurrence: US)
  Receive Date: 20220607
  Receipt Date: 20220607
  Transmission Date: 20220720
  Serious: No
  Sender: FDA-Public Use
  Company Number: US-APOTEX-2022AP006289

PATIENT
  Age: 53 Year
  Sex: Male
  Weight: 71 kg

DRUGS (9)
  1. RANITIDINE [Suspect]
     Active Substance: RANITIDINE
     Indication: Premedication
     Dosage: UNK
     Route: 065
  2. RANITIDINE [Suspect]
     Active Substance: RANITIDINE
     Dosage: UNK, Q.H.S.
     Route: 065
  3. CETIRIZINE [Suspect]
     Active Substance: CETIRIZINE HYDROCHLORIDE
     Indication: Premedication
     Dosage: UNK
     Route: 065
  4. CETIRIZINE [Suspect]
     Active Substance: CETIRIZINE HYDROCHLORIDE
     Dosage: UNK, Q.H.S.
     Route: 065
  5. PEGVALIASE [Concomitant]
     Active Substance: PEGVALIASE
     Indication: Phenylketonuria
     Dosage: 2.5 MILLIGRAM, Q.WK.
     Route: 065
  6. PEGVALIASE [Concomitant]
     Active Substance: PEGVALIASE
     Dosage: 2.5 MILLIGRAM, Q.3W
     Route: 065
  7. PEGVALIASE [Concomitant]
     Active Substance: PEGVALIASE
     Dosage: 20 MILLIGRAM, QD
     Route: 065
  8. PEGVALIASE [Concomitant]
     Active Substance: PEGVALIASE
     Dosage: 40 MILLIGRAM
     Route: 065
  9. PEGVALIASE [Concomitant]
     Active Substance: PEGVALIASE
     Dosage: 60 MILLIGRAM
     Route: 065

REACTIONS (1)
  - Fatigue [Unknown]
